FAERS Safety Report 4477709-7 (Version None)
Quarter: 2004Q3

REPORT INFORMATION
  Report Type: 
  Country: None (occurrence: None)
  Receive Date: 20040923
  Receipt Date: 20040615
  Transmission Date: 20050211
  Serious: No
  Sender: FDA-Public Use
  Company Number: USA040670198

PATIENT
  Age: 62 Year
  Sex: Female
  Weight: 63 kg

DRUGS (10)
  1. FORTEO [Suspect]
     Indication: OSTEOPOROSIS
     Dosage: 20 UG/1 SDAY
     Dates: start: 20040610
  2. CALCIUM [Concomitant]
  3. ZYRTEC [Concomitant]
  4. ZANTAC [Concomitant]
     Indication: OSTEOPOROSIS
     Dosage: 20 UG/1 DAYQ
     Dates: start: 20040610
  5. CALCIUM [Concomitant]
  6. ZYRTEC [Concomitant]
  7. ZANTAC [Concomitant]
  8. FLEXERIL [Concomitant]
  9. SYNTHROID [Concomitant]
  10. PROPOXYPHENE [Concomitant]

REACTIONS (6)
  - ASTHENIA [None]
  - INJECTION SITE ERYTHEMA [None]
  - INJECTION SITE SWELLING [None]
  - MYALGIA [None]
  - PAIN [None]
  - PARAESTHESIA [None]
